FAERS Safety Report 9184263 (Version 1)
Quarter: 2013Q1

REPORT INFORMATION
  Report Type: Spontaneous
  Country: GB (occurrence: GB)
  Receive Date: 20130322
  Receipt Date: 20130322
  Transmission Date: 20140127
  Serious: Yes (Other)
  Sender: FDA-Public Use
  Company Number: GB-ROCHE-1178502

PATIENT
  Sex: Female
  Weight: 64 kg

DRUGS (8)
  1. VEMURAFENIB [Suspect]
     Indication: MALIGNANT MELANOMA
     Route: 048
     Dates: start: 20120521
  2. VEMURAFENIB [Suspect]
     Route: 065
  3. VEMURAFENIB [Suspect]
     Dosage: 480 MG MORNING AND 240 MG EVENING
     Route: 065
  4. METFORMIN [Concomitant]
     Indication: DIABETES MELLITUS
     Route: 048
     Dates: start: 2004
  5. BENDROFLUMETHIAZID [Concomitant]
     Indication: HYPERTENSION
     Route: 048
     Dates: start: 2009
  6. BISOPROLOL [Concomitant]
     Indication: HYPERTENSION
     Route: 048
     Dates: start: 2008
  7. SIMVASTATINE [Concomitant]
     Indication: HYPERCHOLESTEROLAEMIA
     Route: 048
     Dates: start: 2008
  8. LOSARTAN [Concomitant]
     Indication: HYPERTENSION
     Route: 065
     Dates: start: 2009

REACTIONS (3)
  - Photosensitivity reaction [Unknown]
  - Rash [Unknown]
  - Blood creatinine increased [Unknown]
